FAERS Safety Report 6296584-1 (Version None)
Quarter: 2009Q3

REPORT INFORMATION
  Report Type: 
  Country: None (occurrence: None)
  Receive Date: 20090804
  Receipt Date: 20090731
  Transmission Date: 20100115
  Serious: Yes (Other)
  Sender: FDA-Public Use
  Company Number: US-MERCK-0906USA01915

PATIENT
  Age: 71 Year
  Sex: Female
  Weight: 73 kg

DRUGS (3)
  1. FOSAMAX [Suspect]
     Indication: OSTEOPOROSIS
     Route: 048
     Dates: start: 20050101, end: 20090101
  2. PROVERA [Concomitant]
     Route: 065
  3. ESTRACE [Concomitant]
     Route: 065

REACTIONS (4)
  - DYSPHAGIA [None]
  - LICHEN PLANUS [None]
  - ORAL DISCOMFORT [None]
  - ORAL PAIN [None]
